FAERS Safety Report 21643246 (Version 1)
Quarter: 2022Q4

REPORT INFORMATION
  Report Type: Spontaneous
  Country: CA (occurrence: CA)
  Receive Date: 20221125
  Receipt Date: 20221125
  Transmission Date: 20230113
  Serious: Yes (Death)
  Sender: FDA-Public Use
  Company Number: None

PATIENT
  Age: 8 Year
  Sex: Male

DRUGS (8)
  1. CARBOPLATIN [Suspect]
     Active Substance: CARBOPLATIN
     Indication: Undifferentiated sarcoma
     Dosage: DOSAGE FORM: SOLUTION INTRAVENOUS.
  2. DOXORUBICIN [Suspect]
     Active Substance: DOXORUBICIN
     Indication: Undifferentiated sarcoma
     Dosage: 1 EVERY 3 WEEKS, 75 MG/M2, DOSAGE FORM: SOLUTION INTRAVENOUS.
  3. ETOPOSIDE [Suspect]
     Active Substance: ETOPOSIDE
     Indication: Undifferentiated sarcoma
  4. TOPOTECAN [Suspect]
     Active Substance: TOPOTECAN HYDROCHLORIDE
     Indication: Undifferentiated sarcoma
  5. CRIZOTINIB [Suspect]
     Active Substance: CRIZOTINIB
     Indication: Undifferentiated sarcoma
  6. CYCLOPHOSPHAMIDE [Suspect]
     Active Substance: CYCLOPHOSPHAMIDE
     Indication: Undifferentiated sarcoma
  7. RUXOLITINIB [Suspect]
     Active Substance: RUXOLITINIB
     Indication: Undifferentiated sarcoma
  8. IFOSFAMIDE [Concomitant]
     Active Substance: IFOSFAMIDE
     Indication: Undifferentiated sarcoma

REACTIONS (3)
  - Disease progression [Fatal]
  - Drug ineffective [Fatal]
  - Off label use [Unknown]
